FAERS Safety Report 14891363 (Version 2)
Quarter: 2018Q2

REPORT INFORMATION
  Report Type: Spontaneous
  Country: US (occurrence: US)
  Receive Date: 20180514
  Receipt Date: 20180627
  Transmission Date: 20180711
  Serious: No
  Sender: FDA-Public Use
  Company Number: PHEH2018US016741

PATIENT
  Sex: Male

DRUGS (1)
  1. TRIFLURIDINE. [Suspect]
     Active Substance: TRIFLURIDINE
     Indication: HERPES VIRUS INFECTION
     Dosage: 9 DF, QD
     Route: 047

REACTIONS (4)
  - Eye irritation [Unknown]
  - Ocular hyperaemia [Unknown]
  - Product quality issue [Unknown]
  - Drug ineffective [Unknown]
